FAERS Safety Report 15394660 (Version 1)
Quarter: 2018Q3

REPORT INFORMATION
  Report Type: Spontaneous
  Country: ES (occurrence: ES)
  Receive Date: 20180918
  Receipt Date: 20180918
  Transmission Date: 20181010
  Serious: Yes (Death, Hospitalization)
  Sender: FDA-Public Use
  Company Number: ES-ACCORD-072015

PATIENT
  Age: 92 Year
  Sex: Female

DRUGS (10)
  1. PREGABALIN. [Suspect]
     Active Substance: PREGABALIN
  2. ALPRAZOLAM. [Suspect]
     Active Substance: ALPRAZOLAM
  3. OMEPRAZOLE. [Suspect]
     Active Substance: OMEPRAZOLE
  4. METFORMIN [Suspect]
     Active Substance: METFORMIN HYDROCHLORIDE
  5. SIMVASTATIN. [Suspect]
     Active Substance: SIMVASTATIN
  6. OLANZAPINE. [Suspect]
     Active Substance: OLANZAPINE
  7. PARACETAMOL [Suspect]
     Active Substance: ACETAMINOPHEN
  8. ZOLPIDEM [Suspect]
     Active Substance: ZOLPIDEM\ZOLPIDEM TARTRATE
  9. RAMIPRIL. [Suspect]
     Active Substance: RAMIPRIL
  10. CITALOPRAM [Suspect]
     Active Substance: CITALOPRAM HYDROBROMIDE

REACTIONS (2)
  - Intentional overdose [Fatal]
  - Completed suicide [Fatal]

NARRATIVE: CASE EVENT DATE: 20170611
